FAERS Safety Report 25245825 (Version 1)
Quarter: 2025Q2

REPORT INFORMATION
  Report Type: Spontaneous
  Country: US (occurrence: None)
  Receive Date: 20250428
  Receipt Date: 20250428
  Transmission Date: 20250716
  Serious: No
  Sender: FDA-CTU
  Company Number: None

PATIENT
  Sex: Male

DRUGS (1)
  1. OTEZLA [Suspect]
     Active Substance: APREMILAST
     Indication: Polyarthritis
     Route: 048
     Dates: start: 20250415

REACTIONS (5)
  - Headache [None]
  - Sinus congestion [None]
  - Pulmonary congestion [None]
  - Wheezing [None]
  - Mental status changes [None]
